FAERS Safety Report 23348415 (Version 2)
Quarter: 2024Q1

REPORT INFORMATION
  Report Type: Report from Study
  Country: BE (occurrence: BE)
  Receive Date: 20231228
  Receipt Date: 20240104
  Transmission Date: 20240410
  Serious: Yes (Hospitalization)
  Sender: FDA-Public Use
  Company Number: BE-ABBVIE-4709477

PATIENT
  Sex: Male

DRUGS (14)
  1. CARBIDOPA\LEVODOPA [Suspect]
     Active Substance: CARBIDOPA\LEVODOPA
     Indication: Parkinson^s disease
     Route: 050
     Dates: start: 20201207
  2. CARBIDOPA\LEVODOPA [Suspect]
     Active Substance: CARBIDOPA\LEVODOPA
     Dosage: MD: 8.8 ML, CD: 4.3 ML/H, ED: 3.0 ML DURING 16 HOURS
     Route: 050
     Dates: start: 20230327, end: 20230613
  3. CARBIDOPA\LEVODOPA [Suspect]
     Active Substance: CARBIDOPA\LEVODOPA
     Dosage: MD: 8.7 ML, CD: 4.2 ML/H, ED: 3.4 ML DURING 16 HOURS
     Route: 050
     Dates: start: 20221122, end: 20230327
  4. CARBIDOPA\LEVODOPA [Suspect]
     Active Substance: CARBIDOPA\LEVODOPA
     Dosage: MD: 8.8 ML, CD: 4.1 ML/H, ED: 3.0 ML DURING 16 HOURS
     Route: 050
     Dates: start: 20230613, end: 20230911
  5. CARBIDOPA\LEVODOPA [Suspect]
     Active Substance: CARBIDOPA\LEVODOPA
     Dosage: MD: 8.6 ML, CD: 4.1 ML/H, ED: 3.0 ML DURING 16 HOURS
     Route: 050
     Dates: start: 20230911, end: 20231025
  6. CARBIDOPA\LEVODOPA [Suspect]
     Active Substance: CARBIDOPA\LEVODOPA
     Dosage: MD: 8.6 ML, CD: 4.2 ML/H, ED: 3.0 ML DURING 16 HOURS
     Route: 050
     Dates: start: 20231025, end: 20231221
  7. CARBIDOPA\LEVODOPA [Suspect]
     Active Substance: CARBIDOPA\LEVODOPA
     Dosage: MD: 8.6 ML, CD: 4.2 ML/H, ED: 3.0 ML DURING 16 HOURS
     Route: 050
     Dates: start: 20231221, end: 20231229
  8. CARBIDOPA\LEVODOPA [Suspect]
     Active Substance: CARBIDOPA\LEVODOPA
     Dosage: MD: 8.6 ML, CD: 4.2 ML/H, ED: 3.0 ML DURING 16 HOURS
     Route: 050
     Dates: start: 20231229
  9. PRAMIPEXOLE [Concomitant]
     Active Substance: PRAMIPEXOLE\PRAMIPEXOLE DIHYDROCHLORIDE
     Indication: Parkinson^s disease
     Dosage: 1.05 UNKNOWN?RETARD
  10. BENSERAZIDE\LEVODOPA [Concomitant]
     Active Substance: BENSERAZIDE\LEVODOPA
     Indication: Parkinson^s disease
     Route: 065
  11. BENSERAZIDE\LEVODOPA [Concomitant]
     Active Substance: BENSERAZIDE\LEVODOPA
     Indication: Parkinson^s disease
     Dosage: FREQUENCY TEXT: AT BEDTIME
  12. PRAMIPEXOLE [Concomitant]
     Active Substance: PRAMIPEXOLE\PRAMIPEXOLE DIHYDROCHLORIDE
     Indication: Parkinson^s disease
     Dosage: 1.05 UNKNOWN
     Route: 065
  13. STALEVO [Concomitant]
     Active Substance: CARBIDOPA\ENTACAPONE\LEVODOPA
     Indication: Parkinson^s disease
     Dosage: FREQUENCY TEXT: 10.00, 15.00, 18.00
     Route: 065
  14. STALEVO [Concomitant]
     Active Substance: CARBIDOPA\ENTACAPONE\LEVODOPA
     Indication: Parkinson^s disease
     Dosage: FREQUENCY TEXT: 07.00, 13.00
     Route: 065

REACTIONS (5)
  - Back pain [Not Recovered/Not Resolved]
  - Dyskinesia [Not Recovered/Not Resolved]
  - Therapeutic product effect incomplete [Unknown]
  - Freezing phenomenon [Not Recovered/Not Resolved]
  - Spinal fracture [Unknown]
